FAERS Safety Report 19059448 (Version 2)
Quarter: 2021Q2

REPORT INFORMATION
  Report Type: Report from Study
  Country: US (occurrence: US)
  Receive Date: 20210326
  Receipt Date: 20210507
  Transmission Date: 20210717
  Serious: Yes (Hospitalization)
  Sender: FDA-Public Use
  Company Number: US-ACADIA PHARMACEUTICALS INC.-ACA-2021-PIM-001068

PATIENT
  Age: 87 Year
  Sex: Male

DRUGS (4)
  1. SEROQUEL [Concomitant]
     Active Substance: QUETIAPINE FUMARATE
     Dosage: 25 MG 1?2 ORAL QHS
     Dates: start: 20180321, end: 20200306
  2. NUPLAZID [Suspect]
     Active Substance: PIMAVANSERIN TARTRATE
     Indication: PARKINSON^S DISEASE PSYCHOSIS
     Dosage: 34 MILLIGRAM, QD
     Route: 048
     Dates: start: 20190122
  3. NUPLAZID [Suspect]
     Active Substance: PIMAVANSERIN TARTRATE
     Indication: DELUSION
  4. NUPLAZID [Suspect]
     Active Substance: PIMAVANSERIN TARTRATE
     Indication: HALLUCINATION

REACTIONS (8)
  - Fall [Recovered/Resolved]
  - Asthenia [Unknown]
  - Dysphagia [Recovered/Resolved]
  - Dehydration [Recovered/Resolved]
  - Hypophagia [Unknown]
  - Gait disturbance [Unknown]
  - Balance disorder [Unknown]
  - Dysstasia [Unknown]

NARRATIVE: CASE EVENT DATE: 202103
